FAERS Safety Report 4881007-7 (Version None)
Quarter: 2005Q4

REPORT INFORMATION
  Report Type: 
  Country: None (occurrence: None)
  Receive Date: 20051223
  Receipt Date: 20050929
  Transmission Date: 20060501
  Serious: Yes (Hospitalization)
  Sender: FDA-Public Use
  Company Number: 05P-163-0312308

PATIENT
  Age: 44 Year
  Sex: Female

DRUGS (9)
  1. HUMIRA [Suspect]
     Indication: RHEUMATOID ARTHRITIS
     Dosage: 40 MG, 1 IN 2 WK, SUBCUTANEOUS
     Route: 058
     Dates: start: 20050804, end: 20050928
  2. TRAMADOL HCL [Concomitant]
  3. METHOTREXATE [Concomitant]
  4. AMLODIPINE BESYLATE [Concomitant]
  5. FOLIC ACID [Concomitant]
  6. ZOLPIDEM TARTRATE [Concomitant]
  7. DARVOCET [Concomitant]
  8. INSULIN [Concomitant]
  9. ETANERCEPT [Concomitant]

REACTIONS (2)
  - ANXIETY [None]
  - CELLULITIS [None]
